FAERS Safety Report 6490740-5 (Version None)
Quarter: 2009Q4

REPORT INFORMATION
  Report Type: 
  Country: None (occurrence: None)
  Receive Date: 20091208
  Receipt Date: 20091124
  Transmission Date: 20100525
  Serious: Yes (Disabling, Other)
  Sender: FDA-Public Use
  Company Number: JPI-P-009254

PATIENT
  Age: 47 Year
  Sex: Female
  Weight: 58.9676 kg

DRUGS (8)
  1. XYREM [Suspect]
     Indication: CATAPLEXY
     Dosage: 4.5 GM 92.25 GM, 2 IN 1 D), ORAL; 7.5 GM (3.75 GM, 2 IN 1 D), ORAL; 10.5 GM (5.25 GM, 2 IN 1 D)
     Route: 048
     Dates: start: 20040814, end: 20040908
  2. XYREM [Suspect]
     Indication: CATAPLEXY
     Dosage: 4.5 GM 92.25 GM, 2 IN 1 D), ORAL; 7.5 GM (3.75 GM, 2 IN 1 D), ORAL; 10.5 GM (5.25 GM, 2 IN 1 D)
     Route: 048
     Dates: start: 20040909, end: 20070430
  3. XYREM [Suspect]
     Indication: CATAPLEXY
     Dosage: 4.5 GM 92.25 GM, 2 IN 1 D), ORAL; 7.5 GM (3.75 GM, 2 IN 1 D), ORAL; 10.5 GM (5.25 GM, 2 IN 1 D)
     Route: 048
     Dates: start: 20070501
  4. XYREM [Suspect]
  5. XYREM [Suspect]
  6. XYREM [Suspect]
  7. PAROXETINE HYDROCHLORIDE [Concomitant]
  8. CLONAZEPAM [Concomitant]

REACTIONS (10)
  - ABNORMAL DREAMS [None]
  - CATAPLEXY [None]
  - CONDITION AGGRAVATED [None]
  - FATIGUE [None]
  - POOR QUALITY SLEEP [None]
  - PRODUCT TASTE ABNORMAL [None]
  - SLEEP DISORDER [None]
  - SLEEP TALKING [None]
  - SOMNAMBULISM [None]
  - SPINAL FRACTURE [None]
